FAERS Safety Report 8967781 (Version 2)
Quarter: 2013Q1

REPORT INFORMATION
  Report Type: Spontaneous
  Country: US (occurrence: US)
  Receive Date: 20121218
  Receipt Date: 20130201
  Transmission Date: 20140127
  Serious: Yes (Life-Threatening, Hospitalization)
  Sender: FDA-Public Use
  Company Number: PHEH2012US024681

PATIENT
  Age: 78 Year
  Sex: Female
  Weight: 65 kg

DRUGS (15)
  1. RECLAST [Suspect]
     Indication: OSTEOPOROSIS
     Dosage: 5 MG/100ML YEARLY
     Route: 042
     Dates: start: 20121017
  2. ASPIRIN [Concomitant]
     Dosage: 81 MG,QD
  3. ATENOLOL [Concomitant]
     Dosage: 50 MG, QD
  4. ATROVENT HFA [Concomitant]
     Dosage: 17 UG,/ACT INHALATION
  5. CALCIUM [Concomitant]
     Dosage: UNK
  6. GABAPENTIN [Concomitant]
     Dosage: 100 MG
  7. IPRATROPIUM BROMIDE [Concomitant]
     Dosage: 0.06 %
     Route: 045
  8. LISINOPRIL [Concomitant]
     Dosage: 5 MG,QD
     Route: 048
  9. NITROGLYCERIN [Concomitant]
     Dosage: UNK
     Route: 060
  10. METOPROLOL [Concomitant]
     Dosage: 50 MG, QD
     Route: 048
  11. DYAZIDE [Concomitant]
     Dosage: UNK (CONC: 37.5/25)
  12. PRAVASTATIN [Concomitant]
     Dosage: 20 MG, QD
  13. SYMBICORT [Concomitant]
     Dosage: 2 PUFFS DAILY (CONC: 140/4.5 MCG)
  14. VENTOLINE [Concomitant]
     Dosage: 2 DF, Q46H PRN
  15. PRILOSEC [Concomitant]
     Dosage: 20 MG, QD
     Route: 048

REACTIONS (5)
  - Embolism [Unknown]
  - Pulmonary thrombosis [Unknown]
  - Thrombosis [Unknown]
  - Intestinal ischaemia [Unknown]
  - Atrial fibrillation [Unknown]
